FAERS Safety Report 4355031-7 (Version None)
Quarter: 2004Q2

REPORT INFORMATION
  Report Type: 
  Country: None (occurrence: None)
  Receive Date: 20040504
  Receipt Date: 20040420
  Transmission Date: 20050107
  Serious: Yes (Hospitalization)
  Sender: FDA-Public Use
  Company Number: 2004206488US

PATIENT
  Age: 67 Year
  Sex: Female
  Weight: 63.5 kg

DRUGS (2)
  1. ROGAINE [Suspect]
     Indication: HYPOTRICHOSIS
     Dosage: 1 ML, BID, TOPICAL
     Route: 061
     Dates: start: 19990110, end: 20030104
  2. GLUCOPHAGE [Concomitant]

REACTIONS (2)
  - PARATHYROID GLAND ENLARGEMENT [None]
  - THYROID GLAND CANCER [None]
